FAERS Safety Report 7945560-9 (Version None)
Quarter: 2011Q4

REPORT INFORMATION
  Report Type: 
  Country: None (occurrence: None)
  Receive Date: 20111122
  Receipt Date: 20111115
  Transmission Date: 20120403
  Serious: Yes (Death, Other)
  Sender: FDA-Public Use
  Company Number: 2011SP051167

PATIENT
  Age: 55 Year
  Sex: Male

DRUGS (8)
  1. PREDNISONE TAB [Concomitant]
  2. VICTRELIS [Suspect]
     Indication: HEPATITIS C
     Dosage: 800 MG;BID;PO, PO
     Route: 048
     Dates: start: 20110901, end: 20111026
  3. VICTRELIS [Suspect]
     Indication: HEPATITIS C
     Dosage: 800 MG;BID;PO, PO
     Route: 048
     Dates: start: 20111104
  4. EPREX [Concomitant]
  5. RIBAVIRIN [Suspect]
     Indication: HEPATITIS C
     Dosage: 800 MG;BID;PO, PO
     Route: 048
     Dates: start: 20111104
  6. RIBAVIRIN [Suspect]
     Indication: HEPATITIS C
     Dosage: 800 MG;BID;PO, PO
     Route: 048
     Dates: start: 20110817, end: 20111026
  7. PEGASYS [Suspect]
     Indication: HEPATITIS C
     Dosage: 180 MCG;QW;SC, SC
     Route: 058
     Dates: start: 20110817, end: 20111026
  8. PEGASYS [Suspect]
     Indication: HEPATITIS C
     Dosage: 180 MCG;QW;SC, SC
     Route: 058
     Dates: start: 20111104

REACTIONS (4)
  - MYOCARDIAL INFARCTION [None]
  - CARDIAC ARREST [None]
  - SEPTIC SHOCK [None]
  - DEEP VEIN THROMBOSIS [None]
